FAERS Safety Report 6165103-2 (Version None)
Quarter: 2009Q2

REPORT INFORMATION
  Report Type: 
  Country: None (occurrence: None)
  Receive Date: 20090421
  Receipt Date: 20090421
  Transmission Date: 20091009
  Serious: Yes (Other)
  Sender: FDA-Public Use
  Company Number: None

PATIENT
  Sex: Male
  Weight: 134 kg

DRUGS (1)
  1. AVELOX [Suspect]
     Dosage: Q DAY IV
     Route: 042
     Dates: start: 20090416, end: 20090416

REACTIONS (2)
  - ELECTROCARDIOGRAM QT PROLONGED [None]
  - HEART RATE DECREASED [None]
